FAERS Safety Report 22826718 (Version 7)
Quarter: 2023Q4

REPORT INFORMATION
  Report Type: Report from Study
  Country: US (occurrence: None)
  Receive Date: 20230816
  Receipt Date: 20231003
  Transmission Date: 20240110
  Serious: Yes (Hospitalization)
  Sender: FDA-Public Use
  Company Number: US-Eisai Medical Research-EC-2023-145860

PATIENT
  Age: 63 Year
  Sex: Male
  Weight: 55.6 kg

DRUGS (16)
  1. LENVATINIB [Suspect]
     Active Substance: LENVATINIB
     Indication: Hepatocellular carcinoma
     Route: 048
     Dates: start: 20230713, end: 20230726
  2. LENVATINIB [Suspect]
     Active Substance: LENVATINIB
     Dosage: 4 MG, DOSE DECREASED
     Route: 048
     Dates: start: 20230803
  3. PEMBROLIZUMAB [Suspect]
     Active Substance: PEMBROLIZUMAB
     Indication: Hepatocellular carcinoma
     Route: 041
     Dates: start: 20230713, end: 20230713
  4. PEMBROLIZUMAB [Suspect]
     Active Substance: PEMBROLIZUMAB
     Route: 041
     Dates: start: 20230824
  5. BELZUTIFAN [Suspect]
     Active Substance: BELZUTIFAN
     Indication: Hepatocellular carcinoma
     Route: 048
     Dates: start: 20230713, end: 20230726
  6. BELZUTIFAN [Suspect]
     Active Substance: BELZUTIFAN
     Dosage: 80 MG, DOSE DECREASED
     Route: 048
     Dates: start: 20230803
  7. TYLENOL [Concomitant]
     Active Substance: ACETAMINOPHEN
     Dates: start: 202106
  8. STIOLTO RESPIMAT [Concomitant]
     Active Substance: OLODATEROL HYDROCHLORIDE\TIOTROPIUM BROMIDE MONOHYDRATE
     Dates: start: 202211
  9. PRILOSEC [Concomitant]
     Active Substance: OMEPRAZOLE MAGNESIUM
     Dates: start: 202211
  10. OXYCODONE [Concomitant]
     Active Substance: OXYCODONE
     Dates: start: 20230720
  11. ZOFRAN [Concomitant]
     Active Substance: ONDANSETRON HYDROCHLORIDE
     Dates: start: 20230713
  12. CEFEPIME [Concomitant]
     Active Substance: CEFEPIME HYDROCHLORIDE
     Dates: start: 20230727, end: 20230727
  13. CEFTRIAXONE [Concomitant]
     Active Substance: CEFTRIAXONE
     Dates: start: 20230727, end: 20230727
  14. VANCOMYCIN [Concomitant]
     Active Substance: VANCOMYCIN
     Dates: start: 20230727, end: 20230727
  15. DUONEB [Concomitant]
     Active Substance: ALBUTEROL SULFATE\IPRATROPIUM BROMIDE
     Dates: start: 20230727, end: 20230727
  16. LOSARTAN POTASSIUM\RAMIPRIL [Concomitant]
     Active Substance: LOSARTAN POTASSIUM\RAMIPRIL
     Dates: start: 20230727, end: 20230727

REACTIONS (4)
  - Hepatic encephalopathy [Recovered/Resolved]
  - Acute respiratory failure [Recovered/Resolved]
  - Blood bilirubin increased [Recovered/Resolved]
  - Lymphocyte count decreased [Recovered/Resolved]

NARRATIVE: CASE EVENT DATE: 20230727
